FAERS Safety Report 7433542-5 (Version None)
Quarter: 2011Q2

REPORT INFORMATION
  Report Type: 
  Country: None (occurrence: None)
  Receive Date: 20110422
  Receipt Date: 20110308
  Transmission Date: 20111010
  Serious: Yes (Hospitalization)
  Sender: FDA-Public Use
  Company Number: PHHY2011CH19102

PATIENT
  Age: 41 Year
  Sex: Female

DRUGS (1)
  1. GLEEVEC [Suspect]
     Indication: CHRONIC MYELOID LEUKAEMIA
     Dosage: 400 MG PER DAY

REACTIONS (13)
  - ENCEPHALOPATHY [None]
  - PORTAL HYPERTENSION [None]
  - ABDOMINAL PAIN UPPER [None]
  - HEPATIC CIRRHOSIS [None]
  - HEPATIC NECROSIS [None]
  - JAUNDICE [None]
  - CYTOLYTIC HEPATITIS [None]
  - FLUID RETENTION [None]
  - DECREASED APPETITE [None]
  - COAGULATION FACTOR V LEVEL ABNORMAL [None]
  - LIVER FUNCTION TEST ABNORMAL [None]
  - HEPATOMEGALY [None]
  - HEPATOTOXICITY [None]
